FAERS Safety Report 8999462 (Version 2)
Quarter: 2013Q1

REPORT INFORMATION
  Report Type: Spontaneous
  Country: US (occurrence: US)
  Receive Date: 20130103
  Receipt Date: 20130107
  Transmission Date: 20140127
  Serious: Yes (Hospitalization)
  Sender: FDA-Public Use
  Company Number: US-GLAXOSMITHKLINE-A1003071A

PATIENT
  Age: 73 Year
  Sex: Male

DRUGS (3)
  1. ADVAIR [Suspect]
     Indication: ASTHMA
     Route: 055
     Dates: start: 200703, end: 200704
  2. ALBUTEROL [Concomitant]
  3. SODIUM CHLORIDE SOLUTION [Concomitant]

REACTIONS (11)
  - Pneumonia [Unknown]
  - Cor pulmonale [Unknown]
  - Chronic obstructive pulmonary disease [Unknown]
  - Dyspnoea [Unknown]
  - Expired drug administered [Unknown]
  - Cough [Unknown]
  - Wheezing [Unknown]
  - Atelectasis [Unknown]
  - Hypoxia [Unknown]
  - Rhonchi [Unknown]
  - Rales [Unknown]
